FAERS Safety Report 17410039 (Version 7)
Quarter: 2021Q2

REPORT INFORMATION
  Report Type: Spontaneous
  Country: IN (occurrence: IN)
  Receive Date: 20200212
  Receipt Date: 20210630
  Transmission Date: 20210716
  Serious: Yes (Other)
  Sender: FDA-Public Use
  Company Number: IN-PFIZER INC-2019392017

PATIENT
  Age: 38 Year
  Sex: Male

DRUGS (7)
  1. CRIZALK [Suspect]
     Active Substance: CRIZOTINIB
     Dosage: 250 MG, 2X/DAY
     Route: 048
     Dates: start: 20200125
  2. ROLES?D [Concomitant]
  3. SOMPRAZ?D [Concomitant]
     Dosage: 1 DF, 1X/DAY
  4. A TO Z GOLD NS [Concomitant]
     Dosage: 15 G, 1X/DAY
  5. RANIDOM [Concomitant]
  6. CRIZALK [Suspect]
     Active Substance: CRIZOTINIB
     Indication: NON-SMALL CELL LUNG CANCER
     Dosage: 250 MG, 2X/DAY
     Route: 048
     Dates: start: 20180118
  7. BIO D3 PLUS [Concomitant]

REACTIONS (9)
  - Second primary malignancy [Unknown]
  - Skin exfoliation [Unknown]
  - Allergic sinusitis [Unknown]
  - Abdominal discomfort [Not Recovered/Not Resolved]
  - Nasopharyngitis [Unknown]
  - Neoplasm progression [Unknown]
  - Adenocarcinoma [Unknown]
  - Hypersensitivity [Unknown]
  - Cough [Unknown]
